FAERS Safety Report 5173198-8 (Version None)
Quarter: 2006Q4

REPORT INFORMATION
  Report Type: 
  Country: None (occurrence: None)
  Receive Date: 20061214
  Receipt Date: 20061207
  Transmission Date: 20070319
  Serious: Yes (Hospitalization)
  Sender: FDA-Public Use
  Company Number: 2006PK02571

PATIENT
  Age: 84 Year
  Sex: Female

DRUGS (6)
  1. TENORETIC 50 [Suspect]
     Indication: ESSENTIAL HYPERTENSION
     Dosage: 12.5MG/ 50 MG DAILY
     Route: 048
     Dates: start: 20020101, end: 20061019
  2. DURAGESIC-100 [Suspect]
     Indication: BONE PAIN
     Dosage: 2.1 MG FOR TEN HOURS
     Route: 062
     Dates: start: 20061019, end: 20061019
  3. ASPIRIN [Concomitant]
     Route: 048
  4. SELIPRAN [Concomitant]
     Route: 048
  5. ZOLPIDEM TARTRATE [Concomitant]
     Route: 048
  6. TRAMADOL HCL [Concomitant]
     Route: 048
     Dates: start: 20061014, end: 20061019

REACTIONS (3)
  - BLOOD POTASSIUM DECREASED [None]
  - BLOOD SODIUM DECREASED [None]
  - VOMITING [None]
